FAERS Safety Report 11689407 (Version 2)
Quarter: 2015Q4

REPORT INFORMATION
  Report Type: Report from Study
  Country: US (occurrence: US)
  Receive Date: 20151102
  Receipt Date: 20151112
  Transmission Date: 20160304
  Serious: Yes (Death, Hospitalization, Other)
  Sender: FDA-Public Use
  Company Number: US-BAXALTA-2015BLT002401

PATIENT
  Age: 85 Year
  Sex: Female

DRUGS (2)
  1. ARALAST NP [Suspect]
     Active Substance: .ALPHA.1-PROTEINASE INHIBITOR HUMAN
     Dosage: UNK
     Route: 065
     Dates: start: 200810
  2. ARALAST NP [Suspect]
     Active Substance: .ALPHA.1-PROTEINASE INHIBITOR HUMAN
     Indication: ALPHA-1 ANTI-TRYPSIN DEFICIENCY
     Dosage: UNK
     Route: 065
     Dates: start: 2000

REACTIONS (3)
  - Nasopharyngitis [Unknown]
  - Condition aggravated [Recovering/Resolving]
  - Pneumonia [Fatal]

NARRATIVE: CASE EVENT DATE: 201509
